FAERS Safety Report 9769548 (Version 1)
Quarter: 2013Q4

REPORT INFORMATION
  Report Type: Spontaneous
  Country: US (occurrence: US)
  Receive Date: 20131218
  Receipt Date: 20131218
  Transmission Date: 20140711
  Serious: No
  Sender: FDA-Public Use
  Company Number: US-SHIONOGI, INC-2013000329

PATIENT
  Age: 74 Year
  Sex: Female

DRUGS (3)
  1. OSPHENA [Suspect]
     Indication: CYSTITIS INTERSTITIAL
     Dosage: 60 MG, QD
     Route: 048
     Dates: start: 20131023
  2. OSPHENA [Suspect]
     Indication: OFF LABEL USE
  3. METOPROLOL [Concomitant]
     Indication: TACHYCARDIA
     Dosage: UNK
     Route: 065

REACTIONS (4)
  - Tachycardia [Unknown]
  - Sleep disorder [Unknown]
  - Breast tenderness [Unknown]
  - Off label use [Unknown]
